FAERS Safety Report 8616780-5 (Version None)
Quarter: 2012Q3

REPORT INFORMATION
  Report Type: 
  Country: None (occurrence: None)
  Receive Date: 20120823
  Receipt Date: 20120807
  Transmission Date: 20120928
  Serious: No
  Sender: FDA-Public Use
  Company Number: US-009507513-1208USA004152

PATIENT

DRUGS (1)
  1. GANIRELIX ACETATE INJECTION [Suspect]
     Indication: ASSISTED FERTILISATION
     Dosage: 250 MICROGRAM, QD
     Route: 058
     Dates: start: 20120701

REACTIONS (3)
  - INJECTION SITE HAEMORRHAGE [None]
  - INJECTION SITE PRURITUS [None]
  - INJECTION SITE URTICARIA [None]
